FAERS Safety Report 7946364-3 (Version None)
Quarter: 2011Q4

REPORT INFORMATION
  Report Type: 
  Country: None (occurrence: None)
  Receive Date: 20111125
  Receipt Date: 20111111
  Transmission Date: 20120403
  Serious: Yes (Hospitalization)
  Sender: FDA-Public Use
  Company Number: 1000024331

PATIENT
  Age: 94 Year
  Sex: Female

DRUGS (7)
  1. ARICEPT D (DONEPEZIL HYDROCHLORIDE) (DONEPEZIL) [Concomitant]
  2. ANKISOL (AMBOXOL HYDROCHLORIDE) (AMBROXOL HYDROCHLORIDE) [Concomitant]
  3. MEMANTINE HYDROCHLORIDE [Suspect]
     Indication: DEMENTIA ALZHEIMER'S TYPE
     Dosage: 5 MG  (5 MG, 1 IN 1 D), ORAL
     Route: 048
     Dates: start: 20110707, end: 20110713
  4. ZANTAC [Concomitant]
  5. SISAAL (DEXTROMETHORPHAN HYDROBROMIDE) (DEXTROMETHORPHAN HYDROBROMIDE0 [Concomitant]
  6. PEON (ZALTOPROFEN) (ZALTOPROFEN) [Concomitant]
  7. AMLODIPINE [Concomitant]

REACTIONS (5)
  - SEDATION [None]
  - CARDIAC FAILURE ACUTE [None]
  - DEPRESSED LEVEL OF CONSCIOUSNESS [None]
  - SOMNOLENCE [None]
  - PYREXIA [None]
